FAERS Safety Report 9034267 (Version 1)
Quarter: 2013Q1

REPORT INFORMATION
  Report Type: Spontaneous
  Country: US (occurrence: None)
  Receive Date: 20130116
  Receipt Date: 20130116
  Transmission Date: 20140127
  Serious: Yes (Hospitalization)
  Sender: FDA-Public Use
  Company Number: None

PATIENT
  Age: 65 Year
  Sex: Male
  Weight: 86.18 kg

DRUGS (2)
  1. JANUMET XR [Suspect]
     Route: 048
     Dates: start: 20130101, end: 20130113
  2. JANUVIA [Concomitant]

REACTIONS (6)
  - Feeling abnormal [None]
  - Arthralgia [None]
  - Pain in extremity [None]
  - Peripheral coldness [None]
  - Blood glucose increased [None]
  - Sleep disorder [None]
